FAERS Safety Report 4610146-0 (Version None)
Quarter: 2005Q1

REPORT INFORMATION
  Report Type: 
  Country: None (occurrence: None)
  Receive Date: 20050314
  Receipt Date: 20050218
  Transmission Date: 20050727
  Serious: Yes (Other)
  Sender: FDA-Public Use
  Company Number: 7879

PATIENT
  Age: 60 Year
  Sex: Female

DRUGS (2)
  1. SEPTOCAINE (ARTICAINE HCL 4% WITH [Suspect]
     Indication: LOCAL ANAESTHESIA
  2. EPINEPHRINE [Suspect]

REACTIONS (2)
  - HYPOAESTHESIA [None]
  - HYPOAESTHESIA ORAL [None]
